FAERS Safety Report 21266619 (Version 2)
Quarter: 2022Q4

REPORT INFORMATION
  Report Type: Spontaneous
  Country: JP (occurrence: JP)
  Receive Date: 20220829
  Receipt Date: 20221104
  Transmission Date: 20230113
  Serious: Yes (Hospitalization)
  Sender: FDA-Public Use
  Company Number: JP-CHUGAI-2022032810AA

PATIENT
  Age: 56 Year
  Sex: Female
  Weight: 55.9 kg

DRUGS (7)
  1. AVASTIN [Suspect]
     Active Substance: BEVACIZUMAB
     Indication: Ovarian cancer
     Dosage: 840 MILLIGRAM, QD
     Route: 041
     Dates: start: 20220726, end: 20220726
  2. AVASTIN [Suspect]
     Active Substance: BEVACIZUMAB
     Dosage: 840 MILLIGRAM, QD
     Route: 041
     Dates: start: 20220907, end: 20220907
  3. PACLITAXEL [Suspect]
     Active Substance: PACLITAXEL
     Indication: Ovarian cancer
     Dosage: 270 MILLIGRAM, ONCE/3WEEKS
     Route: 041
     Dates: start: 20220425, end: 20220809
  4. PACLITAXEL [Suspect]
     Active Substance: PACLITAXEL
     Dosage: 270 MILLIGRAM, QD
     Route: 041
     Dates: start: 20220907, end: 20220907
  5. CARBOPLATIN [Concomitant]
     Active Substance: CARBOPLATIN
     Indication: Ovarian cancer
     Dosage: 560 MILLIGRAM, ONCE/3WEEKS
     Route: 041
     Dates: start: 20220425, end: 20220809
  6. CARBOPLATIN [Concomitant]
     Active Substance: CARBOPLATIN
     Dosage: 560 MILLIGRAM, QD
     Route: 041
     Dates: start: 20220907, end: 20220907
  7. LEVOTHYROXINE SODIUM [Concomitant]
     Active Substance: LEVOTHYROXINE SODIUM
     Dosage: UNK
     Route: 048
     Dates: start: 20210906

REACTIONS (2)
  - Gamma-glutamyltransferase increased [Recovering/Resolving]
  - Liver disorder [Recovering/Resolving]

NARRATIVE: CASE EVENT DATE: 20220809
